FAERS Safety Report 20896984 (Version 1)
Quarter: 2022Q2

REPORT INFORMATION
  Report Type: Spontaneous
  Country: CN (occurrence: CN)
  Receive Date: 20220531
  Receipt Date: 20220531
  Transmission Date: 20220721
  Serious: Yes (Other)
  Sender: FDA-Public Use
  Company Number: CN-PFIZER INC-202200772523

PATIENT
  Age: 41 Year
  Sex: Male
  Weight: 80 kg

DRUGS (1)
  1. METHYLPREDNISOLONE SODIUM SUCCINATE [Suspect]
     Active Substance: METHYLPREDNISOLONE SODIUM SUCCINATE
     Indication: Rheumatic disorder
     Dosage: 40 MG, 1X/DAY
     Route: 041
     Dates: start: 20220302, end: 20220305

REACTIONS (1)
  - Leukoplakia oral [Recovering/Resolving]

NARRATIVE: CASE EVENT DATE: 20220304
